FAERS Safety Report 6708850-3 (Version None)
Quarter: 2010Q2

REPORT INFORMATION
  Report Type: 
  Country: None (occurrence: None)
  Receive Date: 20100503
  Receipt Date: 20100503
  Transmission Date: 20101027
  Serious: Yes (Hospitalization, Other)
  Sender: FDA-Public Use
  Company Number: None

PATIENT
  Age: 53 Year
  Sex: Female
  Weight: 52.1637 kg

DRUGS (1)
  1. SEROQUEL [Suspect]
     Dosage: 300MG 1 DAILY

REACTIONS (1)
  - ADVERSE DRUG REACTION [None]
